FAERS Safety Report 7545853-3 (Version None)
Quarter: 2011Q2

REPORT INFORMATION
  Report Type: 
  Country: None (occurrence: None)
  Receive Date: 20110614
  Receipt Date: 20110608
  Transmission Date: 20111010
  Serious: Yes (Hospitalization)
  Sender: FDA-Public Use
  Company Number: FR-SANOFI-AVENTIS-2011SA036434

PATIENT
  Age: 53 Year
  Sex: Male

DRUGS (8)
  1. SMECTA ^IPSEN^ [Concomitant]
     Dates: start: 20110101
  2. FLAGYL [Suspect]
     Indication: ABSCESS
     Route: 048
     Dates: start: 20110404, end: 20110507
  3. LEVOFLOXACIN [Suspect]
     Indication: ABSCESS
     Route: 048
     Dates: start: 20110416, end: 20110507
  4. IMODIUM ^JANSSEN-CILAG^ [Concomitant]
     Dates: start: 20110101
  5. ROCEPHIN [Concomitant]
     Route: 065
     Dates: start: 20110404, end: 20110416
  6. ALFUZOSIN HCL [Suspect]
     Route: 048
     Dates: start: 20110311, end: 20110508
  7. LOVENOX [Suspect]
     Route: 058
     Dates: start: 20110204, end: 20110507
  8. ESOMEPRAZOLE MAGNESIUM [Suspect]
     Route: 048
     Dates: start: 20110204, end: 20110508

REACTIONS (3)
  - AGRANULOCYTOSIS [None]
  - GASTROINTESTINAL INFECTION [None]
  - NEUTROPENIA [None]
